FAERS Safety Report 6056831-8 (Version None)
Quarter: 2009Q1

REPORT INFORMATION
  Report Type: 
  Country: None (occurrence: None)
  Receive Date: 20090129
  Receipt Date: 20090119
  Transmission Date: 20090719
  Serious: Yes (Hospitalization, Other)
  Sender: FDA-Public Use
  Company Number: PL-ABBOTT-08P-129-0489779-00

PATIENT
  Age: 30 Year
  Sex: Female
  Weight: 56 kg

DRUGS (4)
  1. KALETRA [Suspect]
     Indication: DRUG USE FOR UNKNOWN INDICATION
     Dosage: 2-200/50MG, TWICE DAILY
     Route: 048
     Dates: start: 20080625
  2. RETROVIR [Suspect]
     Indication: DRUG USE FOR UNKNOWN INDICATION
     Route: 048
     Dates: start: 20080625, end: 20081124
  3. EPIVIR [Concomitant]
     Indication: DRUG USE FOR UNKNOWN INDICATION
     Route: 048
     Dates: start: 20080625, end: 20081124
  4. FTC/TDF [Concomitant]
     Indication: DRUG USE FOR UNKNOWN INDICATION

REACTIONS (6)
  - ANAEMIA [None]
  - ASTHENIA [None]
  - DRUG INTOLERANCE [None]
  - HAEMATOCRIT DECREASED [None]
  - HAEMOGLOBIN DECREASED [None]
  - TACHYCARDIA [None]
